FAERS Safety Report 8152321-7 (Version None)
Quarter: 2012Q1

REPORT INFORMATION
  Report Type: 
  Country: None (occurrence: None)
  Receive Date: 20120221
  Receipt Date: 20120213
  Transmission Date: 20120608
  Serious: Yes (Hospitalization)
  Sender: FDA-Public Use
  Company Number: US-BAYER-2011-044911

PATIENT
  Age: 25 Year
  Sex: Female
  Weight: 67.12 kg

DRUGS (5)
  1. CLONAZEPAM [Concomitant]
     Indication: RESTLESS LEGS SYNDROME
     Dosage: 0.5 MG, QD
     Route: 048
  2. PROTONIX [Concomitant]
     Dosage: UNK
     Route: 048
     Dates: start: 20080313
  3. YAZ [Suspect]
     Indication: CONTRACEPTION
     Dosage: UNK
     Dates: start: 20060731, end: 20080617
  4. YAZ [Suspect]
     Indication: MENSTRUATION IRREGULAR
     Dosage: UNK
     Dates: start: 20090309, end: 20090830
  5. IBUPROFEN [Concomitant]
     Dosage: UNK UNK, PRN

REACTIONS (11)
  - INJURY [None]
  - ANXIETY [None]
  - NAUSEA [None]
  - EMOTIONAL DISTRESS [None]
  - DISCOMFORT [None]
  - BURNING SENSATION [None]
  - GENERAL PHYSICAL HEALTH DETERIORATION [None]
  - MEDICAL DIET [None]
  - CHOLECYSTITIS CHRONIC [None]
  - PAIN [None]
  - ABDOMINAL PAIN [None]
